FAERS Safety Report 19777663 (Version 1)
Quarter: 2021Q3

REPORT INFORMATION
  Report Type: Spontaneous
  Country: US (occurrence: US)
  Receive Date: 20210830
  Receipt Date: 20210830
  Transmission Date: 20211014
  Serious: No
  Sender: FDA-Public Use
  Company Number: None

PATIENT
  Sex: Male

DRUGS (1)
  1. SUTENT [Suspect]
     Active Substance: SUNITINIB MALATE
     Dosage: ?          OTHER FREQUENCY:14 DAYS ON 7 OFF;?
     Route: 048
     Dates: start: 20210729

REACTIONS (3)
  - Pruritus [None]
  - Hypertension [None]
  - Insomnia [None]
